FAERS Safety Report 11668602 (Version 3)
Quarter: 2016Q4

REPORT INFORMATION
  Report Type: Spontaneous
  Country: JP (occurrence: JP)
  Receive Date: 20151027
  Receipt Date: 20161207
  Transmission Date: 20170206
  Serious: Yes (Other)
  Sender: FDA-Public Use
  Company Number: JP-GLAXOSMITHKLINE-JP2015JPN148914

PATIENT
  Age: 33 Year
  Sex: Female
  Weight: 59 kg

DRUGS (16)
  1. LAMICTAL [Suspect]
     Active Substance: LAMOTRIGINE
     Dosage: 50 MG, QD
     Route: 048
     Dates: start: 20150625, end: 20150708
  2. LAMICTAL [Suspect]
     Active Substance: LAMOTRIGINE
     Dosage: 100 MG, QD
     Route: 048
     Dates: start: 20150709, end: 20150805
  3. NEXIUM [Concomitant]
     Active Substance: ESOMEPRAZOLE MAGNESIUM
     Dosage: 20 MG, 1D
  4. LAMICTAL [Suspect]
     Active Substance: LAMOTRIGINE
     Dosage: 200 MG, QD
     Route: 048
     Dates: start: 20150806, end: 20150914
  5. LAMICTAL [Suspect]
     Active Substance: LAMOTRIGINE
     Dosage: 1400 MG, 1D
     Route: 048
     Dates: start: 20151018, end: 20151018
  6. LOXOPROFEN [Concomitant]
     Active Substance: LOXOPROFEN
     Dosage: 120 MG, 1D
  7. LAMICTAL [Suspect]
     Active Substance: LAMOTRIGINE
     Dosage: 300 MG, QD
     Route: 048
     Dates: start: 20150915, end: 20151017
  8. ALPRAZOLAM. [Suspect]
     Active Substance: ALPRAZOLAM
     Dosage: 1.2 MG, 1D
     Route: 048
  9. ETIZOLAM [Suspect]
     Active Substance: ETIZOLAM
     Dosage: 3 MG, 1D
     Route: 048
  10. CALONAL [Concomitant]
     Active Substance: ACETAMINOPHEN
     Dosage: 1000 MG, 1D
  11. LAMICTAL [Suspect]
     Active Substance: LAMOTRIGINE
     Indication: BIPOLAR DISORDER
     Dosage: 25 MG, QD
     Route: 048
     Dates: start: 20150611, end: 20150624
  12. ALPRAZOLAM. [Suspect]
     Active Substance: ALPRAZOLAM
     Dosage: 7.2 MG, 1D
     Route: 048
     Dates: start: 20151018
  13. ETIZOLAM [Suspect]
     Active Substance: ETIZOLAM
     Dosage: 10 MG, 1D
     Route: 048
     Dates: start: 20151018
  14. AZULENE SODIUM SULFONATE + L-GLUTAMINE [Concomitant]
     Dosage: 1.5 G, 1D
  15. GASMOTIN [Concomitant]
     Active Substance: MOSAPRIDE CITRATE
     Dosage: 15 MG, 1D
  16. YOKUKANSAN [Concomitant]
     Active Substance: HERBALS
     Dosage: 7.5 G, 1D

REACTIONS (6)
  - Intentional overdose [Unknown]
  - Coma [Recovered/Resolved]
  - Gait disturbance [Recovering/Resolving]
  - Altered state of consciousness [Recovering/Resolving]
  - Nystagmus [Recovering/Resolving]
  - Pupillary reflex impaired [Recovering/Resolving]

NARRATIVE: CASE EVENT DATE: 20151018
